FAERS Safety Report 6735857-2 (Version None)
Quarter: 2010Q2

REPORT INFORMATION
  Report Type: 
  Country: None (occurrence: None)
  Receive Date: 20100521
  Receipt Date: 20100514
  Transmission Date: 20101027
  Serious: Yes (Death, Hospitalization)
  Sender: FDA-Public Use
  Company Number: A0856154A

PATIENT
  Age: 77 Year
  Sex: Female

DRUGS (1)
  1. TYKERB [Suspect]
     Indication: DRUG USE FOR UNKNOWN INDICATION
     Dosage: 1250MG PER DAY
     Route: 065
     Dates: start: 20100416, end: 20100511

REACTIONS (5)
  - DEATH [None]
  - DRY SKIN [None]
  - RESPIRATORY DISTRESS [None]
  - SKIN CHAPPED [None]
  - SKIN LACERATION [None]
